FAERS Safety Report 11026064 (Version 4)
Quarter: 2016Q4

REPORT INFORMATION
  Report Type: Spontaneous
  Country: US (occurrence: US)
  Receive Date: 20150414
  Receipt Date: 20161213
  Transmission Date: 20170206
  Serious: Yes (Hospitalization, Other)
  Sender: FDA-Public Use
  Company Number: US-009507513-1504USA010708

PATIENT
  Sex: Male

DRUGS (1)
  1. PROPECIA [Suspect]
     Active Substance: FINASTERIDE
     Indication: ALOPECIA
     Dosage: 1 MG, QD
     Route: 048
     Dates: start: 1999, end: 2002

REACTIONS (22)
  - Endocrine disorder [Not Recovered/Not Resolved]
  - Penile size reduced [Not Recovered/Not Resolved]
  - Testicular atrophy [Not Recovered/Not Resolved]
  - Micturition urgency [Unknown]
  - Hernia [Unknown]
  - Brain injury [Not Recovered/Not Resolved]
  - Penis injury [Not Recovered/Not Resolved]
  - Hormone level abnormal [Not Recovered/Not Resolved]
  - Painful ejaculation [Not Recovered/Not Resolved]
  - Anxiety [Not Recovered/Not Resolved]
  - Pollakiuria [Unknown]
  - Psoriasis [Unknown]
  - Erectile dysfunction [Not Recovered/Not Resolved]
  - Male sexual dysfunction [Not Recovered/Not Resolved]
  - Loss of libido [Not Recovered/Not Resolved]
  - Nephrolithiasis [Unknown]
  - Dysuria [Unknown]
  - Depression [Recovered/Resolved]
  - Chest pain [Unknown]
  - Ejaculation disorder [Not Recovered/Not Resolved]
  - Benign prostatic hyperplasia [Unknown]
  - Sleep disorder [Unknown]

NARRATIVE: CASE EVENT DATE: 199904
